FAERS Safety Report 17846362 (Version 1)
Quarter: 2020Q2

REPORT INFORMATION
  Report Type: Spontaneous
  Country: US (occurrence: US)
  Receive Date: 20200531
  Receipt Date: 20200531
  Transmission Date: 20200714
  Serious: Yes (Other)
  Sender: FDA-Public Use
  Company Number: None

PATIENT
  Age: 43 Year
  Sex: Female
  Weight: 54 kg

DRUGS (1)
  1. MYORISAN [Suspect]
     Active Substance: ISOTRETINOIN

REACTIONS (6)
  - Anxiety [None]
  - Headache [None]
  - Palpitations [None]
  - Panic attack [None]
  - Heart rate increased [None]
  - Head discomfort [None]

NARRATIVE: CASE EVENT DATE: 20200530
